APPROVED DRUG PRODUCT: ZAFIRLUKAST
Active Ingredient: ZAFIRLUKAST
Strength: 20MG
Dosage Form/Route: TABLET;ORAL
Application: A212475 | Product #002 | TE Code: AB
Applicant: ANNORA PHARMA PRIVATE LTD
Approved: Sep 10, 2020 | RLD: No | RS: No | Type: RX